FAERS Safety Report 4713689-4 (Version None)
Quarter: 2005Q3

REPORT INFORMATION
  Report Type: 
  Country: None (occurrence: None)
  Receive Date: 20050712
  Receipt Date: 20050628
  Transmission Date: 20060218
  Serious: Yes (Death, Other)
  Sender: FDA-Public Use
  Company Number: USA0506100157

PATIENT
  Age: 87 Year
  Sex: Female

DRUGS (1)
  1. FORTEO [Suspect]

REACTIONS (3)
  - COAGULOPATHY [None]
  - HEPATIC FAILURE [None]
  - PANCREATIC CARCINOMA [None]
